FAERS Safety Report 7893144-3 (Version None)
Quarter: 2011Q4

REPORT INFORMATION
  Report Type: 
  Country: None (occurrence: None)
  Receive Date: 20111104
  Receipt Date: 20111026
  Transmission Date: 20120403
  Serious: Yes (Hospitalization)
  Sender: FDA-Public Use
  Company Number: CN-NOVOPROD-334775

PATIENT

DRUGS (3)
  1. NOVOLIN R [Suspect]
     Indication: TYPE 1 DIABETES MELLITUS
     Dosage: UNK
     Route: 058
     Dates: start: 20050701
  2. NOVOLIN R [Suspect]
     Dosage: 12 IU IN THE MORNING AND 8 IU IN THE AFTERNOON.
     Route: 058
     Dates: start: 20110818
  3. PASINIAZID [Concomitant]
     Indication: TUBERCULOSIS
     Dosage: UNK
     Route: 048
     Dates: start: 20110817

REACTIONS (7)
  - PRODUCT QUALITY ISSUE [None]
  - DEVICE FAILURE [None]
  - LIQUID PRODUCT PHYSICAL ISSUE [None]
  - HAEMOPTYSIS [None]
  - INJECTION SITE HAEMORRHAGE [None]
  - BLOOD GLUCOSE INCREASED [None]
  - MALAISE [None]
